FAERS Safety Report 8994464 (Version 1)
Quarter: 2013Q1

REPORT INFORMATION
  Report Type: Spontaneous
  Country: US (occurrence: US)
  Receive Date: 20130102
  Receipt Date: 20130102
  Transmission Date: 20140127
  Serious: No
  Sender: FDA-Public Use
  Company Number: US-AMGEN-USASP2012079756

PATIENT
  Sex: Female

DRUGS (1)
  1. ENBREL [Suspect]
     Indication: PSORIASIS
     Dosage: 50 MG, ONCE EVERY 4 TO 5 DAYS
     Dates: start: 20050908

REACTIONS (2)
  - Condition aggravated [Recovering/Resolving]
  - Skin plaque [Recovering/Resolving]
